FAERS Safety Report 15280328 (Version 1)
Quarter: 2018Q3

REPORT INFORMATION
  Report Type: Report from Study
  Country: AT (occurrence: AT)
  Receive Date: 20180815
  Receipt Date: 20180815
  Transmission Date: 20181010
  Serious: Yes (Other)
  Sender: FDA-Public Use
  Company Number: AT-UCBSA-2018035439

PATIENT

DRUGS (3)
  1. BRIVARACETAM [Suspect]
     Active Substance: BRIVARACETAM
     Indication: OFF LABEL USE
     Dosage: LOADING DOSE, AT H: 120 MG (MEDIAN), RANGE: 120?2520 MG
     Route: 042
  2. BRIVARACETAM [Suspect]
     Active Substance: BRIVARACETAM
     Indication: STATUS EPILEPTICUS
     Dosage: LOADING DOSE: 100 MG (MEDIAN), 50?200 MG (RANGE)
     Route: 042
  3. BRIVARACETAM [Suspect]
     Active Substance: BRIVARACETAM
     Dosage: LOADING DOSE: 200 MG (MEDIAN), 200?300 MG (RANGE)DAILY DOSE
     Route: 042

REACTIONS (4)
  - Off label use [Unknown]
  - Intentional self-injury [Unknown]
  - Alopecia [Unknown]
  - Drug ineffective [Unknown]
